FAERS Safety Report 9486069 (Version 1)
Quarter: 2013Q3

REPORT INFORMATION
  Report Type: Spontaneous
  Country: FR (occurrence: FR)
  Receive Date: 20130829
  Receipt Date: 20130829
  Transmission Date: 20140515
  Serious: Yes (Hospitalization)
  Sender: FDA-Public Use
  Company Number: FR-US-EMD SERONO, INC.-7234018

PATIENT
  Age: 12 Year
  Sex: Female
  Weight: 30 kg

DRUGS (2)
  1. SAIZEN [Suspect]
     Indication: BODY HEIGHT BELOW NORMAL
     Route: 058
     Dates: start: 2010, end: 20130824
  2. SAIZEN [Suspect]
     Route: 058
     Dates: start: 20130825

REACTIONS (4)
  - Meningitis viral [Recovered/Resolved]
  - Epistaxis [Recovered/Resolved]
  - Headache [Recovered/Resolved]
  - Injection site reaction [Recovered/Resolved]
